FAERS Safety Report 9411102 (Version 1)
Quarter: 2013Q3

REPORT INFORMATION
  Report Type: Report from Study
  Country: TW (occurrence: TW)
  Receive Date: 20130721
  Receipt Date: 20130721
  Transmission Date: 20140515
  Serious: No
  Sender: FDA-Public Use
  Company Number: PHHY2012TW077729

PATIENT
  Age: 61 Year
  Sex: Male

DRUGS (34)
  1. AMN107 [Suspect]
     Dosage: 800 MG, UNK
     Dates: start: 20100820, end: 20120726
  2. AMN107 [Suspect]
     Dosage: 600 MG, UNK
     Dates: start: 20120727
  3. PIOGLITAZONE [Concomitant]
     Indication: DIABETES MELLITUS
     Dosage: UNK
     Dates: end: 20100826
  4. GLIPIZIDE [Concomitant]
     Indication: DIABETES MELLITUS
     Dosage: UNK
     Dates: end: 20100826
  5. GLIPIZIDE [Concomitant]
     Dosage: UNK
     Dates: start: 20110603
  6. NATEGLINIDE [Concomitant]
     Indication: DIABETES MELLITUS
     Dosage: UNK
     Dates: end: 20100826
  7. CICLOPIROX OLAMINE [Concomitant]
     Indication: DERMATITIS
     Dosage: 1 %, UNK
  8. BISOPROLOL HEMIFUMARATE [Concomitant]
     Indication: HYPERTENSION
     Dosage: UNK
  9. FINASTERIDE [Concomitant]
     Indication: HYPERTENSION
     Dosage: UNK
  10. SITAGLIPTIN [Concomitant]
     Indication: DIABETES MELLITUS
     Dosage: UNK
  11. ACARBOSE [Concomitant]
     Indication: DIABETES MELLITUS
     Dosage: UNK
     Dates: end: 20100826
  12. ALLOPURINOL [Concomitant]
     Indication: CHRONIC MYELOID LEUKAEMIA
     Dosage: UNK
  13. HYDROXYZINE HCL [Concomitant]
     Indication: CHRONIC MYELOID LEUKAEMIA
     Dosage: UNK
     Dates: end: 20100812
  14. INSULIN GLARGINE [Concomitant]
     Indication: DIABETES MELLITUS
     Dosage: UNK UKN, UNK
     Dates: start: 20100827, end: 20100909
  15. INSULIN GLARGINE [Concomitant]
     Indication: HYPERGLYCAEMIA
  16. SULFISOMEZOLE [Concomitant]
     Indication: DIABETIC RETINOPATHY
     Dosage: UNK
     Dates: start: 20100628, end: 20120407
  17. TOBRADEX [Concomitant]
     Indication: DIABETIC RETINOPATHY
     Dosage: UNK
     Dates: end: 20120407
  18. AMOXYCILLIN [Concomitant]
     Indication: TOOTHACHE
     Dosage: UNK
     Dates: start: 20100831, end: 20100905
  19. ACETAMINOPHEN [Concomitant]
     Indication: TOOTHACHE
     Dosage: UNK UKN, UNK
     Dates: start: 20100831, end: 20100903
  20. ACETAMINOPHEN [Concomitant]
     Indication: UPPER RESPIRATORY TRACT INFECTION
     Dosage: UNK
     Dates: start: 20120222, end: 20120228
  21. BENZOYL PEROXIDE [Concomitant]
     Indication: PRURITUS
     Dosage: 5 %, UNK
     Dates: start: 20110729
  22. NOVOMIX 30 [Concomitant]
     Indication: DIABETES MELLITUS
     Dosage: UNK
     Dates: start: 20100924
  23. AMBROXOL HCL [Concomitant]
     Indication: UPPER RESPIRATORY TRACT INFECTION
     Dosage: UNK UKN, UNK
     Dates: start: 20120222, end: 20120228
  24. AMBROXOL HCL [Concomitant]
     Dosage: UNK
     Dates: start: 20120309, end: 20120315
  25. BISOPROLOL HEMIFUMARATE [Concomitant]
     Indication: HYPERTENSION
     Dosage: UNK UKN, UNK
  26. ALFUZOSIN [Concomitant]
     Indication: HYPERTENSION
     Dosage: UNK
  27. BETHANECHOL CHLORIDE [Concomitant]
     Indication: LOWER URINARY TRACT SYMPTOMS
     Dosage: UNK
     Dates: start: 20100615, end: 20100628
  28. DOXAZOSIN [Concomitant]
     Indication: LOWER URINARY TRACT SYMPTOMS
     Dosage: UNK
     Dates: start: 20100615, end: 20100628
  29. SECORIN [Concomitant]
     Indication: UPPER RESPIRATORY TRACT INFECTION
     Dosage: UNK
     Dates: start: 20111021, end: 20111024
  30. SECORIN [Concomitant]
     Dosage: UNK
     Dates: start: 20111216, end: 20111222
  31. INSULIN REGULAR HM [Concomitant]
     Indication: DIABETES MELLITUS
     Dosage: UNK
     Dates: start: 20100909, end: 20100923
  32. INSULIN REGULAR HM [Concomitant]
     Indication: HYPERGLYCAEMIA
  33. NPH INSULIN [Concomitant]
     Indication: DIABETES MELLITUS
     Dosage: UNK
     Dates: start: 20100909, end: 20100923
  34. NPH INSULIN [Concomitant]
     Indication: HYPERGLYCAEMIA

REACTIONS (4)
  - Lipase increased [Unknown]
  - Cough [Unknown]
  - Blood bilirubin increased [Unknown]
  - Amylase increased [Unknown]
